FAERS Safety Report 18457962 (Version 1)
Quarter: 2020Q4

REPORT INFORMATION
  Report Type: Spontaneous
  Country: US (occurrence: US)
  Receive Date: 20201103
  Receipt Date: 20201103
  Transmission Date: 20210114
  Serious: No
  Sender: FDA-Public Use
  Company Number: US-TARO-2020TAR01506

PATIENT

DRUGS (1)
  1. MUPIROCIN OINTMENT USP 2% [Suspect]
     Active Substance: MUPIROCIN
     Indication: SKIN IRRITATION
     Dosage: UNK, TID
     Route: 061
     Dates: start: 20200904

REACTIONS (1)
  - Drug ineffective [Unknown]
